FAERS Safety Report 22528353 (Version 1)
Quarter: 2023Q2

REPORT INFORMATION
  Report Type: Spontaneous
  Country: US (occurrence: US)
  Receive Date: 20230607
  Receipt Date: 20230607
  Transmission Date: 20230722
  Serious: Yes (Other)
  Sender: FDA-Public Use
  Company Number: US-002147023-NVSC2023US126500

PATIENT
  Sex: Female

DRUGS (2)
  1. DIGOXIN [Suspect]
     Active Substance: DIGOXIN
     Indication: Tachycardia foetal
     Dosage: UNK
     Route: 030
  2. SOTALOL [Suspect]
     Active Substance: SOTALOL
     Indication: Tachycardia foetal
     Dosage: UNK
     Route: 065

REACTIONS (2)
  - Foetal death [Unknown]
  - Maternal exposure during pregnancy [Unknown]
